FAERS Safety Report 8467098 (Version 2)
Quarter: 2016Q4

REPORT INFORMATION
  Report Type: Spontaneous
  Country: US (occurrence: US)
  Receive Date: 20120320
  Receipt Date: 20161124
  Transmission Date: 20170207
  Serious: Yes (Other)
  Sender: FDA-Public Use
  Company Number: US-ELI_LILLY_AND_COMPANY-US201203004227

PATIENT
  Sex: Male

DRUGS (15)
  1. CYMBALTA [Suspect]
     Active Substance: DULOXETINE HYDROCHLORIDE
     Indication: PAIN
  2. FLUDROCORTISONE [Concomitant]
     Active Substance: FLUDROCORTISONE
     Dosage: UNK, UNKNOWN
     Route: 065
  3. VALACICLOVIR [Concomitant]
     Active Substance: VALACYCLOVIR HYDROCHLORIDE
     Dosage: UNK, UNKNOWN
     Route: 065
  4. CELEBREX [Concomitant]
     Active Substance: CELECOXIB
     Indication: MIGRAINE
     Dosage: UNK, PRN
     Route: 065
  5. FLAGYL [Concomitant]
     Active Substance: METRONIDAZOLE\METRONIDAZOLE HYDROCHLORIDE
     Dosage: UNK, UNKNOWN
     Route: 065
  6. CEFTIN [Concomitant]
     Active Substance: CEFUROXIME AXETIL
     Dosage: UNK, UNKNOWN
     Route: 065
  7. FLORINEF ACETATE [Concomitant]
     Active Substance: FLUDROCORTISONE ACETATE
     Indication: HYPOTENSION
     Dosage: UNK, UNKNOWN
     Route: 065
  8. PREDNISONE. [Concomitant]
     Active Substance: PREDNISONE
     Dosage: UNK, UNKNOWN
     Route: 065
  9. ACYCLOVIR                          /00587301/ [Concomitant]
     Active Substance: ACYCLOVIR
     Dosage: UNK, UNKNOWN
     Route: 065
  10. CELEBREX [Concomitant]
     Active Substance: CELECOXIB
     Indication: HEADACHE
  11. DULOXETINE HYDROCHLORIDE. [Suspect]
     Active Substance: DULOXETINE HYDROCHLORIDE
     Indication: PAIN
  12. KLONOPIN [Concomitant]
     Active Substance: CLONAZEPAM
     Dosage: 1 DF, EACH EVENING
     Route: 065
  13. TYLENOL PM [Concomitant]
     Active Substance: ACETAMINOPHEN\DIPHENHYDRAMINE
     Dosage: 2 DF, EACH EVENING
     Route: 065
  14. CYMBALTA [Suspect]
     Active Substance: DULOXETINE HYDROCHLORIDE
     Indication: DEPRESSION
     Dosage: 60 MG, QD
     Route: 065
  15. DULOXETINE HYDROCHLORIDE. [Suspect]
     Active Substance: DULOXETINE HYDROCHLORIDE
     Indication: DEPRESSION
     Dosage: 60 MG, QD
     Route: 065
     Dates: start: 2013

REACTIONS (19)
  - Lyme disease [Unknown]
  - Memory impairment [Unknown]
  - Sleep apnoea syndrome [Unknown]
  - Periodic limb movement disorder [Unknown]
  - Electrocardiogram abnormal [Unknown]
  - Pain in extremity [Unknown]
  - Headache [Unknown]
  - Adrenal insufficiency [Unknown]
  - Squamous cell carcinoma [Unknown]
  - Basal cell carcinoma [Unknown]
  - Electrocardiogram QT prolonged [Unknown]
  - Arthralgia [Unknown]
  - Myoclonus [Unknown]
  - Renal disorder [Unknown]
  - Rash [Unknown]
  - Hypotension [Unknown]
  - Tinnitus [Unknown]
  - Nephrotic syndrome [Unknown]
  - Human herpesvirus 6 infection [Not Recovered/Not Resolved]

NARRATIVE: CASE EVENT DATE: 2006
